FAERS Safety Report 4819046-4 (Version None)
Quarter: 2005Q4

REPORT INFORMATION
  Report Type: 
  Country: None (occurrence: None)
  Receive Date: 20051101
  Receipt Date: 20051101
  Transmission Date: 20060501
  Serious: Yes (Other)
  Sender: FDA-Public Use
  Company Number: None

PATIENT
  Age: 57 Year
  Sex: Female
  Weight: 65.7716 kg

DRUGS (2)
  1. VAGIFEM [Suspect]
     Indication: ATROPHIC VULVOVAGINITIS
     Dosage: 1 VAGINALLY X 12 DAYS THEN 3 X WEEK
     Route: 067
     Dates: start: 20051001
  2. VAGIFEM [Suspect]
     Indication: ATROPHIC VULVOVAGINITIS
     Dosage: 1 VAGINALLY X 12 DAYS THEN 3 X WEEK
     Route: 067
     Dates: start: 20051021

REACTIONS (4)
  - BLADDER SPASM [None]
  - MICTURITION URGENCY [None]
  - PAIN [None]
  - URETHRAL SPASM [None]
